FAERS Safety Report 13913964 (Version 1)
Quarter: 2017Q3

REPORT INFORMATION
  Report Type: Spontaneous
  Country: US (occurrence: US)
  Receive Date: 20170829
  Receipt Date: 20170829
  Transmission Date: 20171127
  Serious: No
  Sender: FDA-Public Use
  Company Number: US-PFIZER INC-2017022092

PATIENT
  Age: 75 Year
  Sex: Female
  Weight: 74.84 kg

DRUGS (4)
  1. IBRANCE [Suspect]
     Active Substance: PALBOCICLIB
     Dosage: UNK
     Dates: start: 20170818
  2. IBRANCE [Suspect]
     Active Substance: PALBOCICLIB
     Indication: BREAST CANCER METASTATIC
     Dosage: 125 MG, CYCLIC (21 DAYS AND OFF FOR 7 DAYS)
     Dates: end: 20170804
  3. IBRANCE [Suspect]
     Active Substance: PALBOCICLIB
     Indication: BREAST NEOPLASM
     Dosage: 1 DF, DAILY
     Route: 048
  4. LETROZOLE. [Concomitant]
     Active Substance: LETROZOLE
     Dosage: 25 MG, UNK

REACTIONS (2)
  - Weight fluctuation [Unknown]
  - Skin ulcer [Recovering/Resolving]
